FAERS Safety Report 7820182-9 (Version None)
Quarter: 2011Q4

REPORT INFORMATION
  Report Type: 
  Country: None (occurrence: None)
  Receive Date: 20111018
  Receipt Date: 20111017
  Transmission Date: 20120403
  Serious: Yes (Death)
  Sender: FDA-Public Use
  Company Number: US-PFIZER INC-2011248363

PATIENT
  Sex: Male

DRUGS (3)
  1. XALATAN [Suspect]
  2. NORVASC [Suspect]
  3. GLUCOTROL [Suspect]

REACTIONS (1)
  - DEATH [None]
